FAERS Safety Report 4947035-8 (Version None)
Quarter: 2006Q1

REPORT INFORMATION
  Report Type: 
  Country: None (occurrence: None)
  Receive Date: 20060317
  Receipt Date: 20060310
  Transmission Date: 20060701
  Serious: Yes (Other)
  Sender: FDA-Public Use
  Company Number: MX-BRISTOL-MYERS SQUIBB COMPANY-13311014

PATIENT
  Age: 76 Year
  Sex: Female
  Weight: 55 kg

DRUGS (2)
  1. TEQUIN [Suspect]
     Indication: THROMBOPHLEBITIS
     Route: 048
     Dates: start: 20060304, end: 20060309
  2. CANDESARTAN [Concomitant]

REACTIONS (1)
  - HYPERGLYCAEMIA [None]
